FAERS Safety Report 4510336-1 (Version None)
Quarter: 2004Q4

REPORT INFORMATION
  Report Type: 
  Country: None (occurrence: None)
  Receive Date: 20041122
  Receipt Date: 20041115
  Transmission Date: 20050328
  Serious: Yes (Hospitalization)
  Sender: FDA-Public Use
  Company Number: HQWYE445514JUN04

PATIENT
  Age: 48 Year
  Sex: Female
  Weight: 65.83 kg

DRUGS (1)
  1. PREMPRO [Suspect]
     Indication: MENOPAUSE
     Dosage: ORAL
     Route: 048
     Dates: start: 20010801, end: 20020701

REACTIONS (9)
  - ATHEROSCLEROSIS [None]
  - DEEP VEIN THROMBOSIS [None]
  - DISEASE RECURRENCE [None]
  - FEMORAL ARTERY OCCLUSION [None]
  - ISCHAEMIA [None]
  - LEG AMPUTATION [None]
  - NEUROPATHY [None]
  - PAIN [None]
  - PERIPHERAL VASCULAR DISORDER [None]
